FAERS Safety Report 4550380-1 (Version None)
Quarter: 2004Q4

REPORT INFORMATION
  Report Type: 
  Country: None (occurrence: None)
  Receive Date: 20041227
  Receipt Date: 20040830
  Transmission Date: 20050328
  Serious: No
  Sender: FDA-Public Use
  Company Number: US089100

PATIENT
  Sex: Female

DRUGS (11)
  1. ARANESP [Suspect]
     Indication: ANAEMIA
     Dosage: 65 MCG, 1 IN 1 2 WEEKS
     Dates: start: 20020101
  2. IRON [Concomitant]
  3. CYANOCOBALAMIN [Concomitant]
  4. AMLODIPINE AND BENAZEPRIL HYDROCHLORIDE [Concomitant]
  5. FUROSEMIDE [Concomitant]
  6. FENTANYL [Concomitant]
  7. DOCUSATE SODIUM [Concomitant]
  8. ALPRAZOLAM [Concomitant]
  9. CALCITONIN-SALMON [Concomitant]
  10. GABAPENTIN [Concomitant]
  11. PANCRELIPASE [Concomitant]

REACTIONS (1)
  - THERAPEUTIC RESPONSE DECREASED [None]
